FAERS Safety Report 19729150 (Version 1)
Quarter: 2021Q3

REPORT INFORMATION
  Report Type: Spontaneous
  Country: SE (occurrence: SE)
  Receive Date: 20210820
  Receipt Date: 20210820
  Transmission Date: 20211014
  Serious: Yes (Hospitalization)
  Sender: FDA-Public Use
  Company Number: SE-TEVA-2021-SE-1943159

PATIENT
  Age: 87 Year
  Sex: Male

DRUGS (4)
  1. DUOTRAV 40 MIKROGRAM/ML + 5 MG/ML OGONDROPPAR, LOSNING [Concomitant]
     Dosage: UNIT DOSE :1 GTT ,1 DROP DAILY IN BOTH EYES
  2. ATENOLOL. [Suspect]
     Active Substance: ATENOLOL
     Route: 065
  3. WARAN 2,5 MG TABLETT [Concomitant]
     Active Substance: WARFARIN SODIUM
     Dosage: AS PRESCRIBED
  4. OFTAGEL 2,5 MG/G OGONGEL [Concomitant]
     Dosage: UNIT DOSE :4 GTT,1 DROP 3?4 TIMES DAILY

REACTIONS (2)
  - Bradycardia [Recovered/Resolved]
  - Chest pain [Recovered/Resolved]

NARRATIVE: CASE EVENT DATE: 20210704
